FAERS Safety Report 5835874-0 (Version None)
Quarter: 2008Q3

REPORT INFORMATION
  Report Type: 
  Country: None (occurrence: None)
  Receive Date: 20080806
  Receipt Date: 20080724
  Transmission Date: 20090109
  Serious: Yes (Hospitalization)
  Sender: FDA-Public Use
  Company Number: JP-GENENTECH-257790

PATIENT
  Sex: Male

DRUGS (10)
  1. BEVACIZUMAB [Suspect]
     Indication: COLON CANCER METASTATIC
     Dosage: 5 MG/KG, QD
     Route: 041
     Dates: start: 20070831, end: 20080306
  2. OXALIPLATIN [Suspect]
     Indication: COLON CANCER METASTATIC
     Dosage: UNK, UNK
     Route: 041
     Dates: start: 20070831, end: 20080306
  3. FLUOROURACIL [Suspect]
     Indication: COLON CANCER METASTATIC
     Dosage: UNK, UNK
     Route: 042
     Dates: start: 20070831, end: 20080308
  4. ISOVORIN [Concomitant]
     Dosage: UNK, UNK
     Route: 041
     Dates: start: 20070831, end: 20080306
  5. DOMPERIDON [Concomitant]
     Indication: DRUG USE FOR UNKNOWN INDICATION
     Dates: start: 20070816
  6. DEXAMETHASONE 21-PHOSPHATE DISODIUM SALT [Concomitant]
     Indication: DRUG USE FOR UNKNOWN INDICATION
     Dosage: 16 MG, QD
     Dates: start: 20070816
  7. KYTRIL [Concomitant]
     Indication: DRUG USE FOR UNKNOWN INDICATION
     Dosage: 3 MG, QD
     Dates: start: 20070816
  8. ZOFRAN [Concomitant]
     Indication: DRUG USE FOR UNKNOWN INDICATION
     Dosage: 4 MG, QD
     Dates: start: 20070817
  9. SELBEX [Concomitant]
     Indication: DRUG USE FOR UNKNOWN INDICATION
     Dosage: 0.5 G, QD
     Dates: start: 20070818
  10. MAGMITT [Concomitant]
     Indication: DRUG USE FOR UNKNOWN INDICATION
     Dates: start: 20070818

REACTIONS (1)
  - INTERSTITIAL LUNG DISEASE [None]
